FAERS Safety Report 6896631-X (Version None)
Quarter: 2010Q3

REPORT INFORMATION
  Report Type: 
  Country: None (occurrence: None)
  Receive Date: 20100802
  Receipt Date: 20070108
  Transmission Date: 20110219
  Serious: No
  Sender: FDA-Public Use
  Company Number: US-PFIZER INC-2007003336

PATIENT
  Sex: Female

DRUGS (10)
  1. LYRICA [Suspect]
     Indication: NEURALGIA
  2. MORPHINE SULFATE [Concomitant]
  3. LORAZEPAM [Concomitant]
  4. METHADONE HCL [Concomitant]
  5. COLACE [Concomitant]
  6. SENOKOT [Concomitant]
  7. RESTORIL [Concomitant]
  8. MIRALAX [Concomitant]
  9. ANTIDIARRHOEAL MICROORGANISMS [Concomitant]
  10. ALL OTHER THERAPEUTIC PRODUCTS [Concomitant]

REACTIONS (1)
  - POLLAKIURIA [None]
